FAERS Safety Report 6199488-8 (Version None)
Quarter: 2009Q2

REPORT INFORMATION
  Report Type: 
  Country: None (occurrence: None)
  Receive Date: 20090522
  Receipt Date: 20090512
  Transmission Date: 20091009
  Serious: Yes (Other)
  Sender: FDA-Public Use
  Company Number: JP-PFIZER INC-2009202116

PATIENT
  Age: 71 Year

DRUGS (8)
  1. ZYVOX [Suspect]
     Indication: PYREXIA
     Dosage: 600 MG, 2X/DAY
     Route: 048
     Dates: start: 20090222, end: 20090224
  2. MIYARI BACTERIA [Concomitant]
     Dates: end: 20090221
  3. TAKEPRON [Concomitant]
     Dates: end: 20090221
  4. FOIPAN [Concomitant]
     Dates: end: 20090221
  5. BERIZYM [Concomitant]
     Dates: end: 20090221
  6. WARFARIN [Concomitant]
     Dates: end: 20090221
  7. MEROPEN [Concomitant]
     Dates: end: 20090222
  8. NEUTROGIN [Concomitant]
     Dates: start: 20090221

REACTIONS (1)
  - GENERALISED ERYTHEMA [None]
